FAERS Safety Report 22366272 (Version 2)
Quarter: 2024Q3

REPORT INFORMATION
  Report Type: Spontaneous
  Country: CN (occurrence: CN)
  Receive Date: 20230525
  Receipt Date: 20240826
  Transmission Date: 20241017
  Serious: Yes (Other)
  Sender: RANBAXY
  Company Number: CN-SUN PHARMACEUTICAL INDUSTRIES LTD-2023R1-385461

PATIENT
  Age: 34 Year
  Sex: Male

DRUGS (10)
  1. DEXAMETHASONE [Suspect]
     Active Substance: DEXAMETHASONE
     Indication: Acute lymphocytic leukaemia
     Dosage: UNK
     Route: 065
     Dates: start: 20151020
  2. PREDNISONE [Suspect]
     Active Substance: PREDNISONE
     Indication: Acute lymphocytic leukaemia
     Dosage: UNK
     Route: 065
     Dates: start: 20151020
  3. TIGECYCLINE [Suspect]
     Active Substance: TIGECYCLINE
     Indication: Haematological infection
     Dosage: 200 MILLIGRAM, Q12 H
     Route: 065
     Dates: start: 20151030
  4. TIGECYCLINE [Suspect]
     Active Substance: TIGECYCLINE
     Indication: Pneumonia escherichia
     Dosage: 100 MILLIGRAM, Q12 H
     Route: 065
     Dates: end: 20151128
  5. AMIKACIN [Suspect]
     Active Substance: AMIKACIN
     Indication: Haematological infection
     Dosage: 400 MILLIGRAM, DAILY
     Route: 065
     Dates: start: 20151030, end: 20151128
  6. AMIKACIN [Suspect]
     Active Substance: AMIKACIN
     Indication: Pneumonia escherichia
  7. CYCLOPHOSPHAMIDE [Suspect]
     Active Substance: CYCLOPHOSPHAMIDE
     Indication: Acute lymphocytic leukaemia
     Dosage: UNK
     Route: 065
     Dates: start: 20151020
  8. IDARUBICIN [Suspect]
     Active Substance: IDARUBICIN
     Indication: Acute lymphocytic leukaemia
     Dosage: UNK
     Route: 065
     Dates: start: 20151020
  9. VINDESINE [Suspect]
     Active Substance: VINDESINE
     Indication: Acute lymphocytic leukaemia
     Dosage: UNK
     Route: 065
     Dates: start: 20151020
  10. PEGASPARGASE [Concomitant]
     Active Substance: PEGASPARGASE
     Indication: Acute lymphocytic leukaemia
     Dosage: UNK
     Route: 065
     Dates: start: 20151020

REACTIONS (1)
  - Pulmonary mucormycosis [Unknown]

NARRATIVE: CASE EVENT DATE: 20151216
